FAERS Safety Report 14816440 (Version 1)
Quarter: 2018Q2

REPORT INFORMATION
  Report Type: Spontaneous
  Country: DE (occurrence: DE)
  Receive Date: 20180426
  Receipt Date: 20180426
  Transmission Date: 20180711
  Serious: Yes (Hospitalization)
  Sender: FDA-Public Use
  Company Number: DE-SA-2018SA112689

PATIENT
  Age: 63 Year
  Sex: Male
  Weight: 103 kg

DRUGS (11)
  1. ACETYLSALICYLSAEURE [Suspect]
     Active Substance: ASPIRIN
     Route: 048
  2. ACLIDINIUM BROMIDE. [Concomitant]
     Active Substance: ACLIDINIUM BROMIDE
     Route: 055
  3. METOPROLOL. [Concomitant]
     Active Substance: METOPROLOL
     Route: 048
  4. DABIGATRAN [Suspect]
     Active Substance: DABIGATRAN
     Route: 048
  5. AMLODIPIN [Concomitant]
     Active Substance: AMLODIPINE BESYLATE
     Route: 048
  6. TORASEMID [Concomitant]
     Active Substance: TORSEMIDE
     Route: 048
  7. VALSARTAN. [Concomitant]
     Active Substance: VALSARTAN
     Route: 048
  8. SIMVASTATIN. [Concomitant]
     Active Substance: SIMVASTATIN
     Route: 048
  9. CLOPIDOGREL BISULFATE. [Suspect]
     Active Substance: CLOPIDOGREL BISULFATE
     Route: 048
  10. HYDROCHLOROTHIAZID [Concomitant]
     Active Substance: HYDROCHLOROTHIAZIDE
     Route: 048
  11. EPLERENONE. [Concomitant]
     Active Substance: EPLERENONE
     Route: 048

REACTIONS (11)
  - Dyspnoea [Unknown]
  - Abdominal tenderness [Unknown]
  - Hypotension [Unknown]
  - General physical health deterioration [Unknown]
  - Atrial fibrillation [Unknown]
  - Gastrointestinal haemorrhage [Unknown]
  - Melaena [Unknown]
  - Haematochezia [Unknown]
  - Dizziness [Unknown]
  - Renal impairment [Unknown]
  - Anaemia [Unknown]
